FAERS Safety Report 24923759 (Version 3)
Quarter: 2025Q1

REPORT INFORMATION
  Report Type: Spontaneous
  Country: US (occurrence: US)
  Receive Date: 20250204
  Receipt Date: 20250331
  Transmission Date: 20250409
  Serious: Yes (Other)
  Sender: ALEXION PHARMACEUTICALS
  Company Number: US-AstraZeneca-CH-00794020AP

PATIENT
  Age: 56 Year

DRUGS (1)
  1. FASENRA [Suspect]
     Active Substance: BENRALIZUMAB
     Route: 065

REACTIONS (5)
  - Diabetes mellitus [Unknown]
  - Wrong technique in device usage process [Unknown]
  - Crying [Unknown]
  - Sinusitis [Unknown]
  - Headache [Unknown]
